FAERS Safety Report 7940520-6 (Version None)
Quarter: 2011Q4

REPORT INFORMATION
  Report Type: 
  Country: None (occurrence: None)
  Receive Date: 20111114
  Receipt Date: 20110607
  Transmission Date: 20120403
  Serious: Yes (Other)
  Sender: FDA-Public Use
  Company Number: 2011S1000394

PATIENT
  Age: 49 Year
  Sex: Male

DRUGS (8)
  1. CUBICIN [Suspect]
     Indication: OSTEOMYELITIS
     Dosage: 10 MG/KG;Q2H;IV
     Route: 042
  2. TRIMETHOPRIM [Concomitant]
  3. FUSIDIC ACID [Concomitant]
  4. SULFAMETOXAZOL [Concomitant]
  5. RIFAMPICIN [Concomitant]
  6. VANCOMYCIN [Concomitant]
  7. LINEZOLID [Concomitant]
  8. DOXYCYCLINE [Concomitant]

REACTIONS (7)
  - RENAL IMPAIRMENT [None]
  - DERMATITIS ALLERGIC [None]
  - DRUG INEFFECTIVE [None]
  - VOMITING [None]
  - PYREXIA [None]
  - NAUSEA [None]
  - ANAEMIA [None]
